FAERS Safety Report 20289560 (Version 1)
Quarter: 2022Q1

REPORT INFORMATION
  Report Type: Spontaneous
  Country: US (occurrence: US)
  Receive Date: 20220104
  Receipt Date: 20220104
  Transmission Date: 20220423
  Serious: Yes (Other)
  Sender: FDA-Public Use
  Company Number: US-NOVARTISPH-NVSC2021US300176

PATIENT
  Sex: Female
  Weight: 45.35 kg

DRUGS (1)
  1. EGATEN [Suspect]
     Active Substance: TRICLABENDAZOLE
     Indication: Product used for unknown indication
     Dosage: 500 MG, BID (2X, 12HRS APART)
     Route: 065
     Dates: start: 20211227

REACTIONS (1)
  - Fascioliasis [Unknown]
